FAERS Safety Report 24635209 (Version 1)
Quarter: 2024Q4

REPORT INFORMATION
  Report Type: Spontaneous
  Country: US (occurrence: US)
  Receive Date: 20241119
  Receipt Date: 20241119
  Transmission Date: 20250115
  Serious: No
  Sender: MERCK
  Company Number: US-009507513-2411USA001006

PATIENT
  Sex: Male

DRUGS (6)
  1. KEYTRUDA [Suspect]
     Active Substance: PEMBROLIZUMAB
     Indication: Adjuvant therapy
     Dosage: UNK
     Dates: start: 2020
  2. KEYTRUDA [Suspect]
     Active Substance: PEMBROLIZUMAB
     Indication: Adjuvant therapy
  3. CARBOPLATIN [Concomitant]
     Active Substance: CARBOPLATIN
     Indication: Adjuvant therapy
     Dosage: UNK
     Dates: start: 2020
  4. CARBOPLATIN [Concomitant]
     Active Substance: CARBOPLATIN
     Indication: Metastases to central nervous system
  5. PEMETREXED [Concomitant]
     Active Substance: PEMETREXED
     Indication: Adjuvant therapy
     Dosage: UNK
     Dates: start: 2020
  6. PEMETREXED [Concomitant]
     Active Substance: PEMETREXED
     Indication: Metastases to central nervous system

REACTIONS (1)
  - Product use in unapproved indication [Unknown]

NARRATIVE: CASE EVENT DATE: 20200101
